FAERS Safety Report 7865132-4 (Version None)
Quarter: 2011Q4

REPORT INFORMATION
  Report Type: 
  Country: None (occurrence: None)
  Receive Date: 20111028
  Receipt Date: 20101020
  Transmission Date: 20120403
  Serious: No
  Sender: FDA-Public Use
  Company Number: US-GLAXOSMITHKLINE-A0887847A

PATIENT
  Age: 66 Year
  Sex: Female

DRUGS (9)
  1. COMBIVENT [Suspect]
     Dosage: 2PUFF AS REQUIRED
     Dates: start: 20100701
  2. BIPAP [Suspect]
     Indication: PRODUCT USED FOR UNKNOWN INDICATION
     Route: 065
  3. FUROSEMIDE [Concomitant]
  4. ADVAIR DISKUS 100/50 [Suspect]
     Dosage: 1PUFF TWICE PER DAY
     Route: 055
     Dates: start: 20101001
  5. ADVAIR DISKUS 100/50 [Suspect]
     Indication: EMPHYSEMA
     Dosage: 1PUFF TWICE PER DAY
     Route: 055
     Dates: start: 20100701, end: 20101001
  6. VITAMIN D [Concomitant]
  7. OXYGEN [Suspect]
     Indication: PRODUCT USED FOR UNKNOWN INDICATION
     Route: 065
  8. MOBIC [Concomitant]
  9. CALCIUM CARBONATE [Concomitant]

REACTIONS (7)
  - LYMPHADENOPATHY [None]
  - CANDIDIASIS [None]
  - EAR DISCOMFORT [None]
  - NASAL DRYNESS [None]
  - THROAT TIGHTNESS [None]
  - DYSPNOEA [None]
  - DISCOMFORT [None]
